FAERS Safety Report 18755585 (Version 1)
Quarter: 2021Q1

REPORT INFORMATION
  Report Type: Spontaneous
  Country: US (occurrence: US)
  Receive Date: 20210118
  Receipt Date: 20210118
  Transmission Date: 20210419
  Serious: Yes (Death)
  Sender: FDA-Public Use
  Company Number: None

PATIENT
  Age: 80 Year
  Sex: Female
  Weight: 82 kg

DRUGS (16)
  1. MELATONIN 6 MG [Concomitant]
     Dates: start: 20201202, end: 20210118
  2. ATORVASTATIN 10 MG [Concomitant]
     Active Substance: ATORVASTATIN
     Dates: start: 20201202, end: 20210118
  3. GABAPENTIN 300 MG [Concomitant]
     Active Substance: GABAPENTIN
     Dates: start: 20201202, end: 20210118
  4. OSELTAMIVIR 30 MG [Concomitant]
     Dates: start: 20201231, end: 20210104
  5. METOPROLOL SUCCINATE 150 MG [Concomitant]
     Dates: start: 20201203, end: 20210118
  6. BAMLANIVIMAB. [Suspect]
     Active Substance: BAMLANIVIMAB
     Indication: SARS-COV-2 TEST POSITIVE
     Dosage: ?          OTHER FREQUENCY:ONCE;?
     Route: 041
     Dates: start: 20210105, end: 20210105
  7. AMIODARONE 400 MG [Concomitant]
     Dates: start: 20201203, end: 20210118
  8. APIXABAN 2.5 MG [Concomitant]
     Active Substance: APIXABAN
     Dates: start: 20201202, end: 20210118
  9. DOCUSATE 100 MG [Concomitant]
     Dates: start: 20201202, end: 20210118
  10. DULOXETINE 60 MG [Concomitant]
     Active Substance: DULOXETINE
     Dates: start: 20201203, end: 20210118
  11. LEVOTHYROXINE 150 MCG [Concomitant]
     Dates: start: 20201203, end: 20210118
  12. KCL 20 MEQ [Concomitant]
     Dates: start: 20201204, end: 20210118
  13. AMLODIPINE [Concomitant]
     Active Substance: AMLODIPINE BESYLATE
     Dates: start: 20201221, end: 20210118
  14. FOLIC ACID 1 MG [Concomitant]
     Dates: start: 20201202, end: 20210118
  15. LOSARTAN 50 MG [Concomitant]
     Active Substance: LOSARTAN
     Dates: start: 20201203, end: 20210118
  16. ACETAMINOPHEN 650 MG [Concomitant]
     Active Substance: ACETAMINOPHEN
     Dates: start: 20201202, end: 20210118

REACTIONS (10)
  - Hypophagia [None]
  - Speech disorder [None]
  - Confusional state [None]
  - Mental status changes [None]
  - Basilar artery aneurysm [None]
  - Bruxism [None]
  - General physical health deterioration [None]
  - Tremor [None]
  - Blood pressure fluctuation [None]
  - Oxygen saturation abnormal [None]

NARRATIVE: CASE EVENT DATE: 20210105
